FAERS Safety Report 17104697 (Version 1)
Quarter: 2019Q4

REPORT INFORMATION
  Report Type: Spontaneous
  Country: US (occurrence: US)
  Receive Date: 20191203
  Receipt Date: 20191203
  Transmission Date: 20200122
  Serious: Yes (Other)
  Sender: FDA-Public Use
  Company Number: US-UCBSA-2018004733

PATIENT
  Age: 93 Year
  Sex: Female
  Weight: 48 kg

DRUGS (1)
  1. NEUPRO [Suspect]
     Active Substance: ROTIGOTINE
     Indication: RESTLESS LEGS SYNDROME
     Dosage: 2 MG, ONCE DAILY (QD)
     Dates: start: 20171222

REACTIONS (1)
  - Agitation [Recovered/Resolved]

NARRATIVE: CASE EVENT DATE: 20171222
